FAERS Safety Report 10374798 (Version 1)
Quarter: 2014Q1

REPORT INFORMATION
  Report Type: Spontaneous
  Country: US (occurrence: None)
  Receive Date: 20140306
  Receipt Date: 20140306
  Transmission Date: 20141002
  Serious: Yes (Other)
  Sender: FDA-Public Use
  Company Number: 163-21880-13122059

PATIENT
  Age: 73 Year
  Sex: Male
  Weight: 97.27 kg

DRUGS (12)
  1. REVLIMID (LENALIDOMIDE) (10 MILLIGRAM, CAPSULES) [Suspect]
     Indication: MYELODYSPLASTIC SYNDROME
     Route: 048
     Dates: start: 20130911, end: 20131113
  2. FLUOXETINE (FLUOXETINE) [Concomitant]
  3. IRON (IRON) [Concomitant]
  4. METFORMIN (METFORMIN) [Concomitant]
  5. SIMVASTIN (SIMVASTATIN) [Concomitant]
  6. B-12 (CYANOCOBALAMIN) (TABLETS) [Concomitant]
  7. VITAMIN C (ASCORBIC ACID) [Concomitant]
  8. VITAMIN D (ERGOCALCIFEROL) [Concomitant]
  9. MULTIVITAMIN (MULTIVITAMINS) [Concomitant]
  10. PROCRIT (ERYTHROPOIETIN) [Concomitant]
  11. BLOOD (BLOOD AND RELATED PRODUCTS) [Concomitant]
  12. OXYGEN (OXYGEN) [Concomitant]

REACTIONS (4)
  - Oxygen saturation decreased [None]
  - Dyspnoea [None]
  - Eosinophilia [None]
  - Diarrhoea [None]
